FAERS Safety Report 11739768 (Version 1)
Quarter: 2015Q4

REPORT INFORMATION
  Report Type: Spontaneous
  Country: US (occurrence: US)
  Receive Date: 20151113
  Receipt Date: 20151113
  Transmission Date: 20160304
  Serious: Yes (Death)
  Sender: FDA-Public Use
  Company Number: US-ACTELION-A-US2015-127015

PATIENT
  Age: 68 Year
  Sex: Male

DRUGS (1)
  1. TRACLEER [Suspect]
     Active Substance: BOSENTAN
     Indication: PULMONARY ARTERIAL HYPERTENSION
     Dosage: UNK
     Route: 048
     Dates: end: 20151031

REACTIONS (8)
  - Cirrhosis alcoholic [Fatal]
  - Multi-organ failure [Fatal]
  - Ascites [Fatal]
  - Respiratory failure [Fatal]
  - Pulmonary arterial hypertension [Fatal]
  - Disease complication [Fatal]
  - Renal failure [Fatal]
  - Pulmonary fibrosis [Fatal]
